FAERS Safety Report 8226920-8 (Version None)
Quarter: 2012Q1

REPORT INFORMATION
  Report Type: 
  Country: None (occurrence: None)
  Receive Date: 20120322
  Receipt Date: 20110606
  Transmission Date: 20120608
  Serious: No
  Sender: FDA-Public Use
  Company Number: US-MYLANLABS-2011S1011864

PATIENT
  Age: 6 Decade
  Sex: Female

DRUGS (2)
  1. CHLORTHALIDONE [Suspect]
     Indication: DIURETIC THERAPY
     Route: 048
     Dates: end: 20110519
  2. AZILSARTAN MEDOXOMIL [Suspect]
     Indication: HYPERTENSION
     Route: 048
     Dates: start: 20110101

REACTIONS (1)
  - SKIN EXFOLIATION [None]
